FAERS Safety Report 7465800-2 (Version None)
Quarter: 2011Q1

REPORT INFORMATION
  Report Type: 
  Country: None (occurrence: None)
  Receive Date: 20110302
  Receipt Date: 20101105
  Transmission Date: 20110831
  Serious: Yes (Hospitalization, Other)
  Sender: FDA-Public Use
  Company Number: 163-21880-10080417

PATIENT
  Age: 73 Year
  Sex: Male

DRUGS (4)
  1. FLUCONAZOLE [Concomitant]
  2. REVLIMID [Suspect]
     Indication: LYMPHOMA
     Dosage: 15 MG, 1 IN 1 D, PO, 5 MG, DAILY, PO
     Route: 048
     Dates: start: 20100702, end: 20100730
  3. REVLIMID [Suspect]
     Indication: LYMPHOMA
     Dosage: 15 MG, 1 IN 1 D, PO, 5 MG, DAILY, PO
     Route: 048
     Dates: start: 20100901, end: 20101025
  4. ALLOPURINOL [Concomitant]

REACTIONS (6)
  - FEELING ABNORMAL [None]
  - PLATELET COUNT DECREASED [None]
  - RENAL FAILURE [None]
  - HEADACHE [None]
  - WHITE BLOOD CELL COUNT DECREASED [None]
  - RED BLOOD CELL COUNT DECREASED [None]
